FAERS Safety Report 9514284 (Version 1)
Quarter: 2013Q3

REPORT INFORMATION
  Report Type: Report from Study
  Country: US (occurrence: US)
  Receive Date: 20130910
  Receipt Date: 20130910
  Transmission Date: 20140515
  Serious: Yes (Hospitalization)
  Sender: FDA-Public Use
  Company Number: US-SANOFI-AVENTIS-2013SA072046

PATIENT
  Age: 71 Year
  Sex: Female

DRUGS (1)
  1. AUBAGIO [Suspect]
     Indication: MULTIPLE SCLEROSIS
     Dosage: TAKEN FROM- 6-7 WEEKS AGO
     Route: 048
     Dates: start: 201306, end: 20130720

REACTIONS (4)
  - Dehydration [Recovered/Resolved]
  - Rash [Recovered/Resolved]
  - Blepharospasm [Not Recovered/Not Resolved]
  - Alopecia [Not Recovered/Not Resolved]
